FAERS Safety Report 26180926 (Version 1)
Quarter: 2025Q4

REPORT INFORMATION
  Report Type: Spontaneous
  Country: CN (occurrence: CN)
  Receive Date: 20251221
  Receipt Date: 20251221
  Transmission Date: 20260117
  Serious: Yes (Life-Threatening)
  Sender: ABBVIE
  Company Number: CN-ABBVIE-6597571

PATIENT
  Age: 74 Year
  Sex: Female
  Weight: 70 kg

DRUGS (2)
  1. VENETOCLAX [Suspect]
     Active Substance: VENETOCLAX
     Indication: Neoplasm prophylaxis
     Dosage: 300 MILLIGRAM
     Route: 048
     Dates: start: 20251202, end: 20251216
  2. CYTARABINE [Suspect]
     Active Substance: CYTARABINE
     Indication: Neoplasm prophylaxis
     Dosage: 12.5 MILLIGRAM
     Route: 058
     Dates: start: 20251202, end: 20251209

REACTIONS (1)
  - Myelosuppression [Not Recovered/Not Resolved]

NARRATIVE: CASE EVENT DATE: 20251205
